FAERS Safety Report 13182846 (Version 1)
Quarter: 2017Q1

REPORT INFORMATION
  Report Type: Report from Study
  Country: None (occurrence: CA)
  Receive Date: 20170203
  Receipt Date: 20170203
  Transmission Date: 20170428
  Serious: Yes (Hospitalization, Other)
  Sender: FDA-Public Use
  Company Number: CA-ABBVIE-17K-028-1852581-00

PATIENT
  Age: 79 Year
  Sex: Female
  Weight: 67 kg

DRUGS (2)
  1. HUMIRA [Suspect]
     Active Substance: ADALIMUMAB
     Indication: CROHN^S DISEASE
     Route: 058
     Dates: start: 20150504, end: 2017
  2. HUMIRA [Suspect]
     Active Substance: ADALIMUMAB
     Route: 058
     Dates: start: 20170119

REACTIONS (8)
  - Infection [Not Recovered/Not Resolved]
  - Diverticulitis [Not Recovered/Not Resolved]
  - Cystitis [Recovered/Resolved]
  - Cellulitis [Not Recovered/Not Resolved]
  - Cardiac disorder [Recovered/Resolved]
  - Transfusion [Unknown]
  - Cerebrovascular accident [Recovered/Resolved]
  - Cellulitis [Unknown]

NARRATIVE: CASE EVENT DATE: 201508
